FAERS Safety Report 8407730 (Version 11)
Quarter: 2013Q1

REPORT INFORMATION
  Report Type: Spontaneous
  Country: US (occurrence: US)
  Receive Date: 20120215
  Receipt Date: 20130204
  Transmission Date: 20140127
  Serious: Yes (Other)
  Sender: FDA-Public Use
  Company Number: PHEH2012US003531

PATIENT
  Age: 2 Year
  Sex: Female

DRUGS (9)
  1. AFINITOR [Suspect]
     Indication: TUBEROUS SCLEROSIS
     Dosage: 2.5 MG, DAILY
     Route: 048
     Dates: start: 20120121
  2. AFINITOR [Suspect]
     Dosage: 5 MG, UNK
  3. AFINITOR [Suspect]
     Dosage: 2.5 MG, QD
  4. KEPPRA [Concomitant]
     Indication: EPILEPSY
     Dosage: 0.5 DF, BID
     Route: 048
  5. KEPPRA [Concomitant]
     Indication: TUBEROUS SCLEROSIS
  6. LAMOTRIGINE [Concomitant]
     Dosage: UNK
  7. VITAMIN [Concomitant]
     Dosage: UNK
  8. MELATONIN [Concomitant]
     Indication: RESTLESSNESS
     Dosage: 3 MG, QHS
     Route: 048
  9. MELATONIN [Concomitant]
     Indication: INSOMNIA

REACTIONS (7)
  - Cognitive disorder [Recovered/Resolved]
  - Convulsion [Recovering/Resolving]
  - Nephrolithiasis [Recovering/Resolving]
  - Ear infection [Recovering/Resolving]
  - Sleep disorder [Unknown]
  - Urinary tract infection [Unknown]
  - Stomatitis [Unknown]
